FAERS Safety Report 5825318-7 (Version None)
Quarter: 2008Q3

REPORT INFORMATION
  Report Type: 
  Country: None (occurrence: None)
  Receive Date: 20080729
  Receipt Date: 20080723
  Transmission Date: 20090109
  Serious: No
  Sender: FDA-Public Use
  Company Number: US-BAYER-200828845NA

PATIENT
  Age: 26 Year
  Sex: Female

DRUGS (1)
  1. MIRENA [Suspect]
     Indication: CONTRACEPTION
     Route: 015
     Dates: start: 20080625, end: 20080715

REACTIONS (3)
  - ABDOMINAL PAIN LOWER [None]
  - IUCD COMPLICATION [None]
  - OVARIAN CYST RUPTURED [None]
